FAERS Safety Report 19276294 (Version 1)
Quarter: 2021Q2

REPORT INFORMATION
  Report Type: Other
  Country: JP (occurrence: JP)
  Receive Date: 20210520
  Receipt Date: 20210520
  Transmission Date: 20210717
  Serious: Yes (Other)
  Sender: FDA-Public Use
  Company Number: JP-ROCHE-2829996

PATIENT

DRUGS (2)
  1. NIVOLUMAB [Suspect]
     Active Substance: NIVOLUMAB
     Indication: GASTRIC CANCER
     Route: 042
  2. TRASTUZUMAB. [Suspect]
     Active Substance: TRASTUZUMAB
     Indication: GASTRIC CANCER
     Route: 065

REACTIONS (9)
  - Hyperthyroidism [Unknown]
  - Asthma [Unknown]
  - Infusion related reaction [Unknown]
  - Myocarditis [Unknown]
  - Hypothyroidism [Unknown]
  - Hypopituitarism [Unknown]
  - Interstitial lung disease [Unknown]
  - Rash [Unknown]
  - Arthritis [Unknown]
